FAERS Safety Report 18414389 (Version 1)
Quarter: 2020Q4

REPORT INFORMATION
  Report Type: Report from Study
  Country: US (occurrence: US)
  Receive Date: 20201022
  Receipt Date: 20201022
  Transmission Date: 20210114
  Serious: Yes (Other)
  Sender: FDA-Public Use
  Company Number: US-GLAXOSMITHKLINE-US2020AMR210040

PATIENT
  Sex: Female

DRUGS (1)
  1. NIRAPARIB [Suspect]
     Active Substance: NIRAPARIB
     Indication: FALLOPIAN TUBE CANCER
     Dosage: 200 MG, QD
     Dates: start: 20200926, end: 20201003

REACTIONS (6)
  - Nausea [Unknown]
  - Blood sodium decreased [Unknown]
  - Blood creatinine increased [Unknown]
  - Diarrhoea [Unknown]
  - Renal failure [Unknown]
  - Vomiting [Unknown]
